FAERS Safety Report 6998008-5 (Version None)
Quarter: 2010Q3

REPORT INFORMATION
  Report Type: 
  Country: None (occurrence: None)
  Receive Date: 20100920
  Receipt Date: 20100517
  Transmission Date: 20110219
  Serious: Yes (Hospitalization)
  Sender: FDA-Public Use
  Company Number: US-ASTRAZENECA-2007UW08379

PATIENT
  Age: 18733 Day
  Sex: Male

DRUGS (5)
  1. SEROQUEL [Suspect]
     Dosage: TAKE THREE TABLETS AT BEDTIME
     Route: 048
     Dates: start: 20060206
  2. CARISOPRODOL [Concomitant]
     Dates: start: 20060206
  3. NEURONTIN [Concomitant]
  4. EFFEXOR XR [Concomitant]
  5. NEXIUM [Concomitant]

REACTIONS (2)
  - DIABETIC KETOACIDOSIS [None]
  - TYPE 1 DIABETES MELLITUS [None]
